FAERS Safety Report 21028533 (Version 1)
Quarter: 2022Q2

REPORT INFORMATION
  Report Type: Report from Study
  Country: IL (occurrence: IL)
  Receive Date: 20220630
  Receipt Date: 20220630
  Transmission Date: 20220721
  Serious: Yes (Other)
  Sender: FDA-Public Use
  Company Number: IL-JNJFOC-20220660984

PATIENT
  Age: 25 Year
  Sex: Male

DRUGS (2)
  1. ESKETAMINE [Suspect]
     Active Substance: ESKETAMINE
     Indication: Depression
     Dosage: 6 DOSES
     Dates: start: 20220207, end: 20220224
  2. ESKETAMINE [Suspect]
     Active Substance: ESKETAMINE
     Dosage: 6 DOSES
     Dates: start: 20220404, end: 20220503

REACTIONS (2)
  - Crohn^s disease [Recovering/Resolving]
  - Feeling abnormal [Recovered/Resolved]

NARRATIVE: CASE EVENT DATE: 20220224
